FAERS Safety Report 17681136 (Version 2)
Quarter: 2021Q1

REPORT INFORMATION
  Report Type: Report from Study
  Country: ID (occurrence: ID)
  Receive Date: 20200417
  Receipt Date: 20210108
  Transmission Date: 20210419
  Serious: Yes (Death, Other)
  Sender: FDA-Public Use
  Company Number: ID-ASTRAZENECA-2019SF05657

PATIENT
  Age: 25776 Day
  Sex: Male

DRUGS (1)
  1. TAGRISSO [Suspect]
     Active Substance: OSIMERTINIB
     Indication: NON-SMALL CELL LUNG CANCER
     Route: 048
     Dates: start: 20180410

REACTIONS (14)
  - Abdominal discomfort [Unknown]
  - Headache [Unknown]
  - Nausea [Unknown]
  - Neoplasm progression [Unknown]
  - Weight increased [Unknown]
  - Death [Fatal]
  - Feeling abnormal [Unknown]
  - Laziness [Unknown]
  - Pleural effusion [Unknown]
  - Myalgia [Unknown]
  - Malignant neoplasm progression [Unknown]
  - Fatigue [Unknown]
  - Increased appetite [Unknown]
  - Boredom [Unknown]

NARRATIVE: CASE EVENT DATE: 20180913
